FAERS Safety Report 9118811 (Version 1)
Quarter: 2013Q1

REPORT INFORMATION
  Report Type: Spontaneous
  Country: US (occurrence: US)
  Receive Date: 20130226
  Receipt Date: 20130226
  Transmission Date: 20140127
  Serious: Yes (Hospitalization)
  Sender: FDA-Public Use
  Company Number: US-AMGEN-USASP2013003925

PATIENT
  Age: 75 Year
  Sex: Female

DRUGS (2)
  1. NEULASTA [Suspect]
     Indication: NEUTROPENIA
     Dosage: 6 MG, UNK
     Route: 058
     Dates: start: 201301, end: 201301
  2. CHEMOTHERAPEUTICS [Concomitant]
     Dosage: UNK

REACTIONS (12)
  - Lip swelling [Unknown]
  - Pharyngeal oedema [Unknown]
  - Swelling [Unknown]
  - Dyspnoea [Unknown]
  - Mucosal inflammation [Unknown]
  - Tachycardia [Unknown]
  - Skin reaction [Unknown]
  - Pruritus [Unknown]
  - Anaphylactoid reaction [Unknown]
  - Erythema [Unknown]
  - Rash [Unknown]
  - Urticaria [Unknown]
